FAERS Safety Report 24104003 (Version 1)
Quarter: 2024Q3

REPORT INFORMATION
  Report Type: Spontaneous
  Country: IL (occurrence: IL)
  Receive Date: 20240717
  Receipt Date: 20240717
  Transmission Date: 20241017
  Serious: Yes (Life-Threatening, Hospitalization)
  Sender: BOEHRINGER INGELHEIM
  Company Number: IL-BoehringerIngelheim-2024-BI-040240

PATIENT
  Age: 6 Decade
  Sex: Male

DRUGS (1)
  1. JARDIANCE [Suspect]
     Active Substance: EMPAGLIFLOZIN
     Indication: Cardiac failure

REACTIONS (3)
  - Urosepsis [Unknown]
  - Sepsis [Unknown]
  - Urinary tract infection [Unknown]
